FAERS Safety Report 18961653 (Version 1)
Quarter: 2021Q1

REPORT INFORMATION
  Report Type: Spontaneous
  Country: US (occurrence: US)
  Receive Date: 20210303
  Receipt Date: 20210303
  Transmission Date: 20210420
  Serious: No
  Sender: FDA-Public Use
  Company Number: US-SA-2021SA068595

PATIENT
  Age: 23 Year
  Sex: Female

DRUGS (3)
  1. TRETINOIN. [Concomitant]
     Active Substance: TRETINOIN
  2. DUPIXENT [Suspect]
     Active Substance: DUPILUMAB
     Indication: DYSPEPSIA
     Dosage: 300 MG, QOW
     Route: 058
     Dates: start: 20210203
  3. TACROLIMUS. [Concomitant]
     Active Substance: TACROLIMUS

REACTIONS (2)
  - Eye disorder [Not Recovered/Not Resolved]
  - Off label use [Unknown]

NARRATIVE: CASE EVENT DATE: 20210203
